FAERS Safety Report 5123189-8 (Version None)
Quarter: 2006Q4

REPORT INFORMATION
  Report Type: 
  Country: None (occurrence: None)
  Receive Date: 20061005
  Receipt Date: 20060919
  Transmission Date: 20070319
  Serious: Yes (Other)
  Sender: FDA-Public Use
  Company Number: 2006094614

PATIENT
  Age: 68 Year
  Sex: Male
  Weight: 83 kg

DRUGS (3)
  1. TAHOR            (ATORVASTATIN) [Suspect]
     Indication: HYPERCHOLESTEROLAEMIA
     Dosage: 10 MG (10 MG, 1 IN 1 D), ORAL
     Route: 048
     Dates: start: 20040101
  2. METFORMIN HCL [Concomitant]
  3. INSULIN             (INSULIN) [Concomitant]

REACTIONS (2)
  - PAIN IN EXTREMITY [None]
  - SKIN EXFOLIATION [None]
